FAERS Safety Report 15339391 (Version 1)
Quarter: 2018Q3

REPORT INFORMATION
  Report Type: Spontaneous
  Country: CA (occurrence: CA)
  Receive Date: 20180831
  Receipt Date: 20180831
  Transmission Date: 20181010
  Serious: Yes (Other)
  Sender: FDA-Public Use
  Company Number: PHHY2018CA009410

PATIENT

DRUGS (10)
  1. LEFLUNOMIDE. [Interacting]
     Active Substance: LEFLUNOMIDE
     Indication: JUVENILE IDIOPATHIC ARTHRITIS
     Dosage: 20 MG, QD
     Route: 048
     Dates: start: 20170116
  2. METHOTREXATE. [Suspect]
     Active Substance: METHOTREXATE
     Indication: JUVENILE IDIOPATHIC ARTHRITIS
     Dosage: UNK (15?25 MG PER WEEK)
     Route: 058
     Dates: start: 20160331
  3. ETANERCEPT [Interacting]
     Active Substance: ETANERCEPT
     Indication: JUVENILE IDIOPATHIC ARTHRITIS
     Dosage: UNK
     Route: 065
  4. ADALIMUMAB [Interacting]
     Active Substance: ADALIMUMAB
     Indication: JUVENILE IDIOPATHIC ARTHRITIS
     Dosage: UNK
     Route: 065
  5. INFLIXIMAB [Interacting]
     Active Substance: INFLIXIMAB
     Indication: JUVENILE IDIOPATHIC ARTHRITIS
     Dosage: UNK
     Route: 065
  6. PREDNISONE. [Suspect]
     Active Substance: PREDNISONE
     Indication: JUVENILE IDIOPATHIC ARTHRITIS
     Dosage: UNK
     Route: 065
  7. NAPROXEN. [Interacting]
     Active Substance: NAPROXEN
     Indication: PRODUCT USED FOR UNKNOWN INDICATION
     Dosage: UNK
     Route: 065
  8. METHOTREXATE. [Interacting]
     Active Substance: METHOTREXATE
     Dosage: UNK (15?25 MG PER WEEK)
     Route: 058
     Dates: start: 201610, end: 201701
  9. FOLIC ACID. [Interacting]
     Active Substance: FOLIC ACID
     Indication: PRODUCT USED FOR UNKNOWN INDICATION
     Dosage: UNK
     Route: 065
  10. SULFASALAZINE. [Suspect]
     Active Substance: SULFASALAZINE
     Indication: JUVENILE IDIOPATHIC ARTHRITIS
     Dosage: UNK
     Route: 065

REACTIONS (8)
  - Drug intolerance [Recovered/Resolved]
  - Drug effect incomplete [Recovered/Resolved]
  - Gastric disorder [Recovered/Resolved]
  - Polyarthritis [Recovered/Resolved]
  - Drug interaction [Unknown]
  - Sacroiliitis [Recovered/Resolved]
  - Drug ineffective [Recovered/Resolved]
  - Alopecia [Recovered/Resolved]
